FAERS Safety Report 18974037 (Version 1)
Quarter: 2021Q1

REPORT INFORMATION
  Report Type: Spontaneous
  Country: CN (occurrence: CN)
  Receive Date: 20210305
  Receipt Date: 20210305
  Transmission Date: 20210420
  Serious: Yes (Other)
  Sender: FDA-Public Use
  Company Number: CN-BAXTER-2021BAX004238

PATIENT
  Age: 52 Year
  Sex: Female
  Weight: 67 kg

DRUGS (12)
  1. 5% GLUCOSE  INJECTION [Suspect]
     Active Substance: DEXTROSE
     Dosage: 5% GLUCOSE + PIRARUBICIN HYDROCHLORIDE (DOSE RE?INTRODUCED)
     Route: 041
  2. 5% GLUCOSE  INJECTION [Suspect]
     Active Substance: DEXTROSE
     Indication: MEDICATION DILUTION
     Dosage: 5% GLUCOSE 500 ML + PACLITAXEL LIPOSOMES 210 MG
     Route: 041
     Dates: start: 20210129, end: 20210129
  3. PIRARUBICIN HYDROCHLORIDE [Suspect]
     Active Substance: PIRARUBICIN HYDROCHLORIDE
     Dosage: PIRARUBICIN HYDROCHLORIDE + 5% GLUCOSE (DOSE RE?INTRODUCED)
     Route: 041
  4. 0.9% SODIUM CHLORIDE INJECTION [Suspect]
     Active Substance: SODIUM CHLORIDE
     Dosage: 0.9% SODIUM CHLORIDE + CYCLOPHOSPHAMIDE (DOSE RE?INTRODUCED)
     Route: 041
  5. 5% GLUCOSE  INJECTION [Suspect]
     Active Substance: DEXTROSE
     Dosage: 5% GLUCOSE + PACLITAXEL LIPOSOMES (DOSE RE?INTRODUCED)
     Route: 041
  6. PACLITAXEL LIPOSOME [Suspect]
     Active Substance: PACLITAXEL
     Indication: BREAST CANCER FEMALE
     Dosage: PACLITAXEL LIPOSOME 210 MG + 5% GLUCOSE 500 ML
     Route: 041
     Dates: start: 20210129, end: 20210129
  7. PIRARUBICIN HYDROCHLORIDE [Suspect]
     Active Substance: PIRARUBICIN HYDROCHLORIDE
     Indication: BREAST CANCER FEMALE
     Dosage: PIRARUBICIN HYDROCHLORIDE 60 MG + 5% GLUCOSE 100 ML
     Route: 041
     Dates: start: 20210129, end: 20210129
  8. ENDOXAN [Suspect]
     Active Substance: CYCLOPHOSPHAMIDE
     Indication: BREAST CANCER FEMALE
     Dosage: CYCLOPHOSPHAMIDE 0.8 G + 0.9% SODIUM CHLORIDE 100 ML
     Route: 041
     Dates: start: 20210129, end: 20210129
  9. ENDOXAN [Suspect]
     Active Substance: CYCLOPHOSPHAMIDE
     Dosage: CYCLOPHOSPHAMIDE + 0.9% SODIUM CHLORIDE (DOSE RE?INTRODUCED)
     Route: 041
  10. 5% GLUCOSE  INJECTION [Suspect]
     Active Substance: DEXTROSE
     Dosage: 5% GLUCOSE 100 ML + PIRARUBICIN HYDROCHLORIDE 60 MG
     Route: 041
     Dates: start: 20210129, end: 20210129
  11. 0.9% SODIUM CHLORIDE INJECTION [Suspect]
     Active Substance: SODIUM CHLORIDE
     Indication: MEDICATION DILUTION
     Dosage: 0.9% SODIUM CHLORIDE 100 ML + CYCLOPHOSPHAMIDE 0.8 G
     Route: 041
     Dates: start: 20210129, end: 20210129
  12. PACLITAXEL LIPOSOME [Suspect]
     Active Substance: PACLITAXEL
     Dosage: PACLITAXEL LIPOSOME + 5% GLUCOSE (DOSE RE?INTRODUCED)
     Route: 041

REACTIONS (2)
  - Leukopenia [Recovered/Resolved]
  - Granulocytopenia [Recovered/Resolved]

NARRATIVE: CASE EVENT DATE: 20210210
